FAERS Safety Report 5294074-6 (Version None)
Quarter: 2007Q2

REPORT INFORMATION
  Report Type: 
  Country: None (occurrence: None)
  Receive Date: 20070406
  Receipt Date: 20070329
  Transmission Date: 20071010
  Serious: Yes (Disabling, Other)
  Sender: FDA-Public Use
  Company Number: 002#2#2007-00056

PATIENT
  Age: 48 Year
  Sex: Female
  Weight: 52.1637 kg

DRUGS (11)
  1. REGLAN [Suspect]
     Indication: NAUSEA
     Dosage: 10MG, 3 IN 1 D; ORAL
     Route: 048
     Dates: start: 20060701, end: 20060101
  2. REGLAN [Suspect]
     Indication: VOMITING
     Dosage: 10MG, 3 IN 1 D; ORAL
     Route: 048
     Dates: start: 20060701, end: 20060101
  3. REGLAN [Suspect]
     Indication: GASTRIC HYPOMOTILITY
     Dosage: 5MG, 4 IN 1 D; ORAL, 5MG, 3 IN 1 D; ORAL
     Route: 048
     Dates: start: 20060929, end: 20060101
  4. REGLAN [Suspect]
     Indication: GASTRIC HYPOMOTILITY
     Dosage: 5MG, 4 IN 1 D; ORAL, 5MG, 3 IN 1 D; ORAL
     Route: 048
     Dates: start: 20060101, end: 20070220
  5. REGLAN [Suspect]
     Indication: PROCEDURAL NAUSEA
     Dosage: ORAL
     Route: 048
     Dates: start: 20030101, end: 20030101
  6. REGLAN [Suspect]
     Indication: PROCEDURAL VOMITING
     Dosage: ORAL
     Route: 048
     Dates: start: 20030101, end: 20030101
  7. ESOMEPRAZOLE MAGNESIUM [Concomitant]
  8. HYDROCHLOROTHIAZIDE [Concomitant]
  9. GABAPENTIN [Concomitant]
  10. DRONABINOL [Concomitant]
  11. ESTROGENS CONJUGATED [Concomitant]

REACTIONS (16)
  - ABDOMINAL PAIN [None]
  - ADHESION [None]
  - AGITATION [None]
  - AGORAPHOBIA [None]
  - ANXIETY [None]
  - CONFUSIONAL STATE [None]
  - CRYING [None]
  - DECREASED APPETITE [None]
  - DEPRESSION [None]
  - DISTURBANCE IN ATTENTION [None]
  - DRUG WITHDRAWAL SYNDROME [None]
  - EXTRAPYRAMIDAL DISORDER [None]
  - FEELING ABNORMAL [None]
  - INSOMNIA [None]
  - TARDIVE DYSKINESIA [None]
  - UNEVALUABLE EVENT [None]
